FAERS Safety Report 24049716 (Version 1)
Quarter: 2024Q3

REPORT INFORMATION
  Report Type: Report from Study
  Country: CA (occurrence: CA)
  Receive Date: 20240704
  Receipt Date: 20240704
  Transmission Date: 20241017
  Serious: Yes (Other)
  Sender: RANBAXY
  Company Number: CA-SUNPHARMA-2022R1-368880AA

PATIENT
  Age: 74 Year
  Sex: Male

DRUGS (1)
  1. TILDRAKIZUMAB [Suspect]
     Active Substance: TILDRAKIZUMAB
     Indication: Psoriasis
     Dosage: 100 MILLIGRAM, WEEK 0,4,12
     Route: 058
     Dates: start: 20220607

REACTIONS (8)
  - Haemorrhage [Unknown]
  - Palindromic rheumatism [Unknown]
  - Injection site bruising [Unknown]
  - Impaired healing [Unknown]
  - Platelet count decreased [Unknown]
  - Therapeutic response decreased [Unknown]
  - Self-medication [Unknown]
  - Product administration error [Unknown]

NARRATIVE: CASE EVENT DATE: 20240331
